FAERS Safety Report 19193504 (Version 3)
Quarter: 2021Q2

REPORT INFORMATION
  Report Type: Report from Study
  Country: None (occurrence: US)
  Receive Date: 20210428
  Receipt Date: 20210523
  Transmission Date: 20210717
  Serious: Yes (Hospitalization, Other)
  Sender: FDA-Public Use
  Company Number: US-ABBVIE-20K-163-3578330-00

PATIENT
  Age: 67 Year
  Sex: Female
  Weight: 104.87 kg

DRUGS (2)
  1. HUMIRA [Suspect]
     Active Substance: ADALIMUMAB
     Indication: RHEUMATOID ARTHRITIS
     Route: 058
     Dates: start: 2019, end: 202102
  2. HUMIRA [Suspect]
     Active Substance: ADALIMUMAB
     Indication: COLITIS ULCERATIVE
     Route: 058
     Dates: start: 202103

REACTIONS (6)
  - Catheterisation cardiac [Recovering/Resolving]
  - Postoperative wound infection [Recovered/Resolved]
  - Post procedural infection [Unknown]
  - COVID-19 [Recovered/Resolved]
  - Intervertebral disc protrusion [Recovered/Resolved]
  - Sciatica [Unknown]

NARRATIVE: CASE EVENT DATE: 202009
